FAERS Safety Report 9789269 (Version 1)
Quarter: 2013Q4

REPORT INFORMATION
  Report Type: Spontaneous
  Country: IT (occurrence: IT)
  Receive Date: 20131230
  Receipt Date: 20131230
  Transmission Date: 20140711
  Serious: Yes (Other)
  Sender: FDA-Public Use
  Company Number: IT-ACTAVIS-2013-23660

PATIENT
  Age: 59 Year
  Sex: Female

DRUGS (2)
  1. QUETIAPINE (UNKNOWN) [Suspect]
     Indication: BIPOLAR II DISORDER
     Dosage: 50 MG, QPM
     Route: 065
  2. QUETIAPINE (UNKNOWN) [Suspect]
     Indication: INSOMNIA

REACTIONS (8)
  - Somnambulism [Recovered/Resolved]
  - Akathisia [Not Recovered/Not Resolved]
  - Confusional state [None]
  - Dissociative disorder [None]
  - Abnormal sleep-related event [None]
  - Face injury [None]
  - Joint injury [None]
  - Mouth haemorrhage [None]
